FAERS Safety Report 18213843 (Version 1)
Quarter: 2020Q3

REPORT INFORMATION
  Report Type: Spontaneous
  Country: US (occurrence: US)
  Receive Date: 20200831
  Receipt Date: 20200831
  Transmission Date: 20201103
  Serious: No
  Sender: FDA-Public Use
  Company Number: None

PATIENT
  Age: 61 Year
  Sex: Male

DRUGS (1)
  1. BUPRENORPHINE (BUPRENORPHINE 7.5MCG/HR PATCH) [Suspect]
     Active Substance: BUPRENORPHINE
     Indication: PAIN
     Dosage: ?          OTHER STRENGTH:7.5MCG/HR;OTHER DOSE:7.5MCG/HR;?
     Dates: start: 20200406, end: 20200819

REACTIONS (1)
  - Rash [None]

NARRATIVE: CASE EVENT DATE: 20200819
